FAERS Safety Report 9381634 (Version 1)
Quarter: 2013Q3

REPORT INFORMATION
  Report Type: Spontaneous
  Country: FR (occurrence: FR)
  Receive Date: 20130703
  Receipt Date: 20130703
  Transmission Date: 20140515
  Serious: Yes (Life-Threatening, Hospitalization)
  Sender: FDA-Public Use
  Company Number: FR-PFIZER INC-2013195871

PATIENT
  Age: 64 Year
  Sex: Female

DRUGS (6)
  1. CORDARONE [Suspect]
     Dosage: 1 DF, DAILY
     Route: 048
     Dates: start: 201304
  2. CUBICIN [Interacting]
     Dosage: 350 MG, DAILY
     Route: 042
     Dates: start: 20130503, end: 20130506
  3. HALDOL [Interacting]
     Dosage: 10 DROP(S), 3 TIMES A DAY
     Route: 048
     Dates: start: 201304
  4. BACTRIM [Concomitant]
     Dosage: UNK
     Dates: end: 20130427
  5. CLINDAMYCIN [Concomitant]
     Indication: SEPSIS
     Dosage: 600 MG, 3X/DAY
     Dates: end: 20130502
  6. AMOXICILLIN [Concomitant]
     Indication: SEPSIS
     Dosage: 2 G, 3X/DAY

REACTIONS (2)
  - Drug interaction [Recovered/Resolved]
  - Renal failure acute [Recovered/Resolved]
